FAERS Safety Report 7534886-9 (Version None)
Quarter: 2011Q2

REPORT INFORMATION
  Report Type: 
  Country: None (occurrence: None)
  Receive Date: 20110609
  Receipt Date: 20081024
  Transmission Date: 20111010
  Serious: Yes (Hospitalization, Other)
  Sender: FDA-Public Use
  Company Number: PHHY2008GB17228

PATIENT
  Sex: Male

DRUGS (1)
  1. CLOZAPINE [Suspect]
     Indication: SCHIZOPHRENIA
     Route: 048
     Dates: start: 19950510

REACTIONS (4)
  - OESOPHAGEAL STENOSIS [None]
  - DYSPHAGIA [None]
  - OESOPHAGEAL CARCINOMA [None]
  - LUNG NEOPLASM MALIGNANT [None]
